FAERS Safety Report 19244734 (Version 1)
Quarter: 2021Q2

REPORT INFORMATION
  Report Type: Spontaneous
  Country: NL (occurrence: NL)
  Receive Date: 20210511
  Receipt Date: 20210511
  Transmission Date: 20210717
  Serious: Yes (Other)
  Sender: FDA-Public Use
  Company Number: NL-MYLANLABS-2021M1027215

PATIENT
  Sex: Male
  Weight: 72 kg

DRUGS (2)
  1. MESALAZINE [Concomitant]
     Active Substance: MESALAMINE
     Dosage: MODIFIED?RELEASE TABLET, 500 MG (MILLIGRAMS)
  2. PANTOPRAZOLE [Suspect]
     Active Substance: PANTOPRAZOLE
     Indication: DYSPEPSIA
     Dosage: 1X PER DAY 1 PIECE
     Dates: start: 202012, end: 20210111

REACTIONS (1)
  - Colitis ulcerative [Not Recovered/Not Resolved]
